FAERS Safety Report 7817847-1 (Version None)
Quarter: 2011Q4

REPORT INFORMATION
  Report Type: 
  Country: None (occurrence: None)
  Receive Date: 20111017
  Receipt Date: 20111005
  Transmission Date: 20120403
  Serious: Yes (Other)
  Sender: FDA-Public Use
  Company Number: GB-PFIZER INC-2011243280

PATIENT
  Age: 36 Year
  Sex: Female

DRUGS (4)
  1. PROGRAF [Suspect]
     Indication: LIVER TRANSPLANT
     Dosage: 10 MG PER DAY
     Route: 048
  2. SERTRALINE HYDROCHLORIDE [Suspect]
     Dosage: 100 MG PER DAY
  3. PROGRAF [Suspect]
     Dosage: 6 MG DAILY
     Route: 048
  4. AZATHIOPRINE [Suspect]

REACTIONS (2)
  - MATERNAL EXPOSURE DURING PREGNANCY [None]
  - PREMATURE RUPTURE OF MEMBRANES [None]
